FAERS Safety Report 9412210 (Version 1)
Quarter: 2013Q3

REPORT INFORMATION
  Report Type: Spontaneous
  Country: AU (occurrence: AU)
  Receive Date: 20130722
  Receipt Date: 20130722
  Transmission Date: 20140515
  Serious: Yes (Hospitalization)
  Sender: FDA-Public Use
  Company Number: AU-ROCHE-1250870

PATIENT
  Age: 59 Year
  Sex: Female

DRUGS (8)
  1. AVASTIN [Suspect]
     Indication: PRODUCT USED FOR UNKNOWN INDICATION
     Dosage: LAST DOSE PRIOR TO SAE 03/MAY/2013
     Route: 042
     Dates: start: 20130323
  2. XELODA [Suspect]
     Indication: PRODUCT USED FOR UNKNOWN INDICATION
     Dosage: LAST DOSE PRIOR TO SAE 03/MAY/2013
     Route: 048
  3. OXALIPLATIN [Suspect]
     Indication: PRODUCT USED FOR UNKNOWN INDICATION
     Dosage: LAST DOSE PRIOR TO SAE 03/MAY/2013
     Route: 042
     Dates: start: 20130323
  4. ATENOLOL [Concomitant]
     Route: 065
     Dates: start: 20130503
  5. BISACODYL [Concomitant]
     Route: 065
     Dates: start: 20130515
  6. DOCUSATE SODIUM\SENNOSIDES [Concomitant]
     Route: 065
     Dates: start: 20130515
  7. DEXAMETHASONE [Concomitant]
     Route: 065
     Dates: start: 20130323
  8. GLYCERINE [Concomitant]
     Route: 065
     Dates: start: 20130515

REACTIONS (6)
  - Vomiting [Recovered/Resolved]
  - Nausea [Unknown]
  - Lethargy [Unknown]
  - Dehydration [Unknown]
  - Constipation [Unknown]
  - Fatigue [Unknown]
